FAERS Safety Report 8808794 (Version 2)
Quarter: 2012Q4

REPORT INFORMATION
  Report Type: 
  Country: US (occurrence: US)
  Receive Date: 20120926
  Receipt Date: 20121005
  Transmission Date: 20130627
  Serious: Yes (Death)
  Sender: FDA-Public Use
  Company Number: US-PFIZER INC-2012234953

PATIENT
  Age: 50 Year
  Sex: Female

DRUGS (1)
  1. VFEND [Suspect]
     Indication: ENDOCARDITIS
     Dosage: 200 mg, 2x/day
     Dates: start: 20110517

REACTIONS (1)
  - Death [Fatal]
